FAERS Safety Report 14260681 (Version 1)
Quarter: 2017Q4

REPORT INFORMATION
  Report Type: Spontaneous
  Country: GB (occurrence: GB)
  Receive Date: 20171207
  Receipt Date: 20171207
  Transmission Date: 20180321
  Serious: Yes (Congenital Anomaly)
  Sender: FDA-Public Use
  Company Number: GB-MYLANLABS-2017M1076822

PATIENT
  Sex: Male

DRUGS (1)
  1. VALPROIC ACID. [Suspect]
     Active Substance: VALPROIC ACID
     Indication: PRODUCT USED FOR UNKNOWN INDICATION
     Dosage: 1000 MG, UNK
     Route: 064

REACTIONS (2)
  - Dyspraxia [Unknown]
  - Foetal exposure during pregnancy [Unknown]
